FAERS Safety Report 19561232 (Version 1)
Quarter: 2021Q3

REPORT INFORMATION
  Report Type: Spontaneous
  Country: US (occurrence: US)
  Receive Date: 20210716
  Receipt Date: 20210716
  Transmission Date: 20211014
  Serious: Yes (Life-Threatening, Hospitalization, Other)
  Sender: FDA-Public Use
  Company Number: US-HIKMA PHARMACEUTICALS USA INC.-US-H14001-21-54919

PATIENT
  Age: 3 Year
  Sex: Male

DRUGS (1)
  1. CEFTRIAXONE. [Suspect]
     Active Substance: CEFTRIAXONE
     Indication: PYREXIA
     Dosage: UNKNOWN
     Route: 065

REACTIONS (8)
  - Multiple organ dysfunction syndrome [Recovering/Resolving]
  - Intravascular haemolysis [Recovering/Resolving]
  - Hypertension [Unknown]
  - Acute kidney injury [Recovering/Resolving]
  - Hypocomplementaemia [Recovering/Resolving]
  - Thrombotic microangiopathy [Recovering/Resolving]
  - Thrombocytopenia [Recovering/Resolving]
  - Haemolytic anaemia [Recovering/Resolving]
